FAERS Safety Report 8069398-X (Version None)
Quarter: 2012Q1

REPORT INFORMATION
  Report Type: 
  Country: None (occurrence: None)
  Receive Date: 20120125
  Receipt Date: 20120120
  Transmission Date: 20120608
  Serious: Yes (Hospitalization, Other)
  Sender: FDA-Public Use
  Company Number: UY-JNJFOC-20120109681

PATIENT
  Age: 45 Year
  Sex: Female

DRUGS (1)
  1. LEUSTATIN [Suspect]
     Indication: PRODUCT USED FOR UNKNOWN INDICATION
     Route: 065

REACTIONS (4)
  - HOSPITALISATION [None]
  - BLOOD CREATININE INCREASED [None]
  - RASH [None]
  - TRANSAMINASES ABNORMAL [None]
